FAERS Safety Report 5093189-5 (Version None)
Quarter: 2006Q3

REPORT INFORMATION
  Report Type: 
  Country: None (occurrence: None)
  Receive Date: 20060825
  Receipt Date: 20060815
  Transmission Date: 20061208
  Serious: Yes (Hospitalization, Other)
  Sender: FDA-Public Use
  Company Number: HQWYE600706JUL06

PATIENT
  Age: 21 Year
  Sex: Male
  Weight: 58 kg

DRUGS (17)
  1. RAPAMUNE [Suspect]
     Indication: PROPHYLAXIS AGAINST TRANSPLANT REJECTION
     Dosage: SEE IMAGE
     Route: 048
     Dates: start: 20050206, end: 20060501
  2. RAPAMUNE [Suspect]
     Indication: PROPHYLAXIS AGAINST TRANSPLANT REJECTION
     Dosage: SEE IMAGE
     Route: 048
     Dates: start: 20060502, end: 20060503
  3. RAPAMUNE [Suspect]
     Indication: PROPHYLAXIS AGAINST TRANSPLANT REJECTION
     Dosage: SEE IMAGE
     Route: 048
     Dates: start: 20060404, end: 20060701
  4. RAPAMUNE [Suspect]
     Indication: PROPHYLAXIS AGAINST TRANSPLANT REJECTION
     Dosage: SEE IMAGE
     Route: 048
     Dates: start: 20060702, end: 20060703
  5. RAPAMUNE [Suspect]
     Indication: PROPHYLAXIS AGAINST TRANSPLANT REJECTION
     Dosage: SEE IMAGE
     Route: 048
     Dates: start: 20060704
  6. PREDNISONE TAB [Suspect]
     Indication: IMMUNOSUPPRESSANT DRUG THERAPY
     Dosage: 12.5 MG 1 X PER 1 DAY, ORAL; 10 MG 1X PER 1 DAY, ORAL; 15 MG 1X PER 1 DAY
     Route: 048
     Dates: start: 20060602, end: 20060627
  7. PREDNISONE TAB [Suspect]
     Indication: IMMUNOSUPPRESSANT DRUG THERAPY
     Dosage: 12.5 MG 1 X PER 1 DAY, ORAL; 10 MG 1X PER 1 DAY, ORAL; 15 MG 1X PER 1 DAY
     Route: 048
     Dates: start: 20060628, end: 20060701
  8. PREDNISONE TAB [Suspect]
     Indication: IMMUNOSUPPRESSANT DRUG THERAPY
     Dosage: 12.5 MG 1 X PER 1 DAY, ORAL; 10 MG 1X PER 1 DAY, ORAL; 15 MG 1X PER 1 DAY
     Route: 048
     Dates: start: 20060701
  9. CELLCEPT [Concomitant]
  10. TOPROL-XL [Concomitant]
  11. ADALAT CR (NIFEDIPINE) [Concomitant]
  12. AXID [Concomitant]
  13. BACTRIM [Concomitant]
  14. LIPITOR [Concomitant]
  15. ACETAMINOPHEN [Concomitant]
  16. PENTAMIDINE (PENTAMIDINE) [Concomitant]
  17. IBERET-FOLIC (FERROUS SULFATE/FOLIC ACID/VITAMINS NOS) [Concomitant]

REACTIONS (7)
  - ADRENAL INSUFFICIENCY [None]
  - ASPARTATE AMINOTRANSFERASE INCREASED [None]
  - HYDRONEPHROSIS [None]
  - IMMUNOSUPPRESSANT DRUG LEVEL DECREASED [None]
  - KIDNEY ENLARGEMENT [None]
  - PERITONEAL EFFUSION [None]
  - PLATELET COUNT DECREASED [None]
